FAERS Safety Report 9437595 (Version 4)
Quarter: 2013Q3

REPORT INFORMATION
  Report Type: Spontaneous
  Country: US (occurrence: US)
  Receive Date: 20130731
  Receipt Date: 20130930
  Transmission Date: 20140515
  Serious: Yes (Hospitalization, Other)
  Sender: FDA-Public Use
  Company Number: 2013P1010812

PATIENT
  Age: 41 Year
  Sex: Female
  Weight: 57.15 kg

DRUGS (17)
  1. OXTELLAR XR [Suspect]
     Indication: EPILEPSY
     Route: 048
     Dates: start: 20130709, end: 20130830
  2. OXTELLAR XR [Suspect]
     Route: 048
     Dates: start: 20130709, end: 20130830
  3. OXTELLAR XR [Suspect]
     Indication: EPILEPSY
     Route: 048
     Dates: start: 20130615, end: 20130618
  4. OXTELLAR XR [Suspect]
     Route: 048
     Dates: start: 20130615, end: 20130618
  5. OXTELLAR XR [Suspect]
     Indication: EPILEPSY
     Route: 048
     Dates: start: 20130615, end: 20130618
  6. OXTELLAR XR [Suspect]
     Indication: CONVULSION
     Route: 048
     Dates: start: 20130615, end: 20130618
  7. LIDOCAINE [Suspect]
  8. LIDOCAINE [Suspect]
  9. MULTIVITAMIN WITH MINERALS [Concomitant]
     Route: 048
     Dates: end: 201308
  10. AMINO ACIDS [Concomitant]
  11. DIGESTIVE ENZYMES [Concomitant]
  12. LECITHIN [Concomitant]
  13. VITAMIN B COMPLEX [Concomitant]
  14. VITAMIN E [Concomitant]
  15. FLAX TABLET [Concomitant]
  16. ^OMEGAS^ [Concomitant]
  17. SODIUM [Suspect]
     Route: 048
     Dates: end: 201308

REACTIONS (16)
  - Convulsion [None]
  - Disorientation [None]
  - Nausea [None]
  - Vomiting [None]
  - Abdominal pain upper [None]
  - Dizziness [None]
  - Blood sodium decreased [None]
  - Overdose [None]
  - Gait disturbance [None]
  - Fall [None]
  - Head injury [None]
  - Grand mal convulsion [None]
  - Pharyngeal hypoaesthesia [None]
  - Drug ineffective [None]
  - Headache [None]
  - Swelling face [None]
